FAERS Safety Report 23213816 (Version 1)
Quarter: 2023Q4

REPORT INFORMATION
  Report Type: Spontaneous
  Country: US (occurrence: US)
  Receive Date: 20231121
  Receipt Date: 20231121
  Transmission Date: 20240110
  Serious: Yes (Other)
  Sender: FDA-Public Use
  Company Number: US-TEVA-2023-US-2946864

PATIENT
  Age: 6 Decade
  Sex: Male

DRUGS (5)
  1. PREDNISONE [Suspect]
     Active Substance: PREDNISONE
     Indication: Palisaded neutrophilic granulomatous dermatitis
     Dosage: 3 MG/KG DAILY;
     Route: 065
  2. TRIAMCINOLONE [Suspect]
     Active Substance: TRIAMCINOLONE
     Indication: Palisaded neutrophilic granulomatous dermatitis
     Route: 065
  3. USTEKINUMAB [Suspect]
     Active Substance: USTEKINUMAB
     Indication: Palisaded neutrophilic granulomatous dermatitis
     Route: 065
  4. DAPSONE [Concomitant]
     Active Substance: DAPSONE
     Indication: Palisaded neutrophilic granulomatous dermatitis
     Dosage: 100 MILLIGRAM DAILY;
     Route: 065
  5. CYCLOSPORINE [Concomitant]
     Active Substance: CYCLOSPORINE
     Indication: Palisaded neutrophilic granulomatous dermatitis
     Dosage: 200 MILLIGRAM DAILY;
     Route: 065

REACTIONS (2)
  - Chronic myelomonocytic leukaemia [Unknown]
  - Drug ineffective [Unknown]
